FAERS Safety Report 15116910 (Version 1)
Quarter: 2018Q3

REPORT INFORMATION
  Report Type: Spontaneous
  Country: GB (occurrence: GB)
  Receive Date: 20180706
  Receipt Date: 20180706
  Transmission Date: 20181010
  Serious: Yes (Other)
  Sender: FDA-Public Use
  Company Number: GB-BAYER-2018-125386

PATIENT
  Sex: Male

DRUGS (1)
  1. CIPROFLOXACIN. [Suspect]
     Active Substance: CIPROFLOXACIN
     Indication: PROSTATITIS
     Dosage: UNK UNK, BID
     Route: 048

REACTIONS (15)
  - Muscle contractions involuntary [None]
  - Insomnia [None]
  - Neuralgia [None]
  - Muscle spasms [None]
  - Gait disturbance [None]
  - Drug ineffective [None]
  - Muscular weakness [None]
  - Dyspnoea [None]
  - Skin disorder [None]
  - Muscle twitching [None]
  - Photosensitivity reaction [None]
  - Suicidal ideation [None]
  - Pain [None]
  - Nervous system disorder [None]
  - Visual impairment [None]
